FAERS Safety Report 9802259 (Version 2)
Quarter: 2014Q1

REPORT INFORMATION
  Report Type: Spontaneous
  Country: IT (occurrence: IT)
  Receive Date: 20140107
  Receipt Date: 20140110
  Transmission Date: 20141002
  Serious: Yes (Other)
  Sender: FDA-Public Use
  Company Number: IT-PFIZER INC-2013314522

PATIENT
  Age: 57 Year
  Sex: Female

DRUGS (5)
  1. RAMIPRIL [Suspect]
     Indication: HYPERTENSION
     Dosage: 1 DF, DAILY
     Route: 048
     Dates: end: 20130927
  2. TOLEP [Suspect]
     Indication: BIPOLAR DISORDER
     Dosage: 300 MG, DAILY
     Route: 048
     Dates: end: 20130927
  3. LEXOTAN [Concomitant]
     Dosage: UNK
  4. ZYPREXA [Concomitant]
     Dosage: UNK
  5. NEDEMAX [Concomitant]
     Indication: SUPPLEMENTATION THERAPY

REACTIONS (3)
  - Hyponatraemia [Recovered/Resolved]
  - Balance disorder [Recovered/Resolved]
  - Hypoaesthesia [Recovered/Resolved]
